FAERS Safety Report 8292004 (Version 3)
Quarter: 2012Q4

REPORT INFORMATION
  Report Type: Spontaneous
  Country: US (occurrence: None)
  Receive Date: 20111122
  Receipt Date: 20120426
  Transmission Date: 20130627
  Serious: No
  Sender: FDA-Public Use
  Company Number: PHHY2011US39065

PATIENT
  Age: 56 Year
  Sex: Female

DRUGS (21)
  1. GILENYA [Suspect]
     Indication: MULTIPLE SCLEROSIS
     Dosage: 0.5 MG, QD, ORAL
     Route: 048
     Dates: start: 20110426, end: 201107
  2. AVONEX [Concomitant]
  3. BACLOFEN [Concomitant]
  4. GABAPENTIN [Concomitant]
  5. SKELAXIN [Concomitant]
  6. NUVIGIL [Concomitant]
  7. ROPINIROLE [Concomitant]
  8. BUTALBITAL [Concomitant]
  9. MULTIVITAMINS (ASCORBIC ACID, ERGOCALCIFEROL, FOLIC ACID, NICOTINAMIDE, PANTHENOL, RETINOL, RIBOFLAV [Concomitant]
  10. FLAXSEED OIL (LINUM USITATISSIMUM SEED OIL) [Concomitant]
  11. MRGA-T GREEN TEA [Concomitant]
  12. LECITHIN (LECITHIN) [Concomitant]
  13. COD-LIVER OIL [Concomitant]
  14. LYSINE (LYSINE) [Concomitant]
  15. GINKGO BILOBA (GINKGO BILOBA) [Concomitant]
  16. CALCIUM CARBONATE [Concomitant]
  17. GINSENG (GINSENG, GINSENG NOS) [Concomitant]
  18. 2 FIBER CHOICE TABLETS [Concomitant]
  19. SUNDOWN NATURALS NATURAL WATER PILLS [Concomitant]
  20. SOY ISOFLAVONES (GLYCINE MAX EXTRACT) [Concomitant]
  21. GELATIN (GELATIN) [Concomitant]

REACTIONS (4)
  - Conjunctivitis infective [None]
  - Eye irritation [None]
  - Foreign body sensation in eyes [None]
  - Eye pain [None]
